FAERS Safety Report 7635021-9 (Version None)
Quarter: 2011Q3

REPORT INFORMATION
  Report Type: 
  Country: None (occurrence: None)
  Receive Date: 20110718
  Receipt Date: 20110705
  Transmission Date: 20111222
  Serious: Yes (Death)
  Sender: FDA-Public Use
  Company Number: B0733036A

PATIENT
  Sex: 0

DRUGS (1)
  1. LAMIVUDINE (EPIVIR HBV) [Suspect]
     Indication: HEPATITIS B
     Dosage: 100 MG/ PER DAY

REACTIONS (1)
  - HEPATIC FAILURE [None]
